FAERS Safety Report 11726148 (Version 1)
Quarter: 2015Q4

REPORT INFORMATION
  Report Type: Spontaneous
  Country: US (occurrence: US)
  Receive Date: 20151110
  Receipt Date: 20151110
  Transmission Date: 20160304
  Serious: No
  Sender: FDA-Public Use
  Company Number: US-ELI_LILLY_AND_COMPANY-US201110005530

PATIENT
  Age: 66 Year
  Sex: Female

DRUGS (9)
  1. IBUPROFEN. [Concomitant]
     Active Substance: IBUPROFEN
     Dosage: UNK, PRN
  2. FORTEO [Suspect]
     Active Substance: TERIPARATIDE
     Indication: OSTEOPOROSIS
     Dosage: 20 UG, QD
     Dates: start: 20100420
  3. ZETIA [Concomitant]
     Active Substance: EZETIMIBE
     Dosage: UNK, QD
  4. CALCIUM [Concomitant]
     Active Substance: CALCIUM
     Dosage: 1 DF, QD
  5. MULTIVITAMIN [Concomitant]
     Active Substance: VITAMINS
  6. ADVICOR [Concomitant]
     Active Substance: LOVASTATIN\NIACIN
     Dosage: UNK, QD
  7. FORTEO [Suspect]
     Active Substance: TERIPARATIDE
     Dosage: 20 UG, QD
  8. CALCIUM +D                         /00188401/ [Concomitant]
     Active Substance: CALCIUM\VITAMIN D
     Dosage: UNK, QD
  9. INSULIN [Concomitant]
     Active Substance: INSULIN NOS

REACTIONS (3)
  - Muscular weakness [Not Recovered/Not Resolved]
  - Wrist fracture [Recovering/Resolving]
  - Fall [Unknown]

NARRATIVE: CASE EVENT DATE: 201109
